FAERS Safety Report 8774820 (Version 1)
Quarter: 2012Q4

REPORT INFORMATION
  Report Type: 
  Country: US (occurrence: US)
  Receive Date: 20120910
  Receipt Date: 20120910
  Transmission Date: 20130627
  Serious: No
  Sender: FDA-Public Use
  Company Number: US-B.I. PHARMACEUTICALS,INC./RIDGEFIELD-2012-BP-22141BP

PATIENT
  Age: 7 Year
  Sex: Female

DRUGS (3)
  1. SPIRIVA [Suspect]
     Indication: ASTHMA
     Dosage: 18 mcg
     Route: 055
     Dates: start: 20110911
  2. SYMBICORT [Suspect]
     Indication: ASTHMA
     Route: 055
     Dates: end: 201101
  3. FLOVENT [Suspect]
     Indication: ASTHMA
     Route: 055
     Dates: start: 201109

REACTIONS (1)
  - Growth retardation [Not Recovered/Not Resolved]
